FAERS Safety Report 22099959 (Version 1)
Quarter: 2023Q1

REPORT INFORMATION
  Report Type: Spontaneous
  Country: US (occurrence: US)
  Receive Date: 20230315
  Receipt Date: 20230315
  Transmission Date: 20230418
  Serious: Yes (Other)
  Sender: FDA-Public Use
  Company Number: US-002147023-NVSC2023US056679

PATIENT
  Age: 43 Year
  Sex: Male

DRUGS (1)
  1. METOPROLOL [Suspect]
     Active Substance: METOPROLOL
     Indication: Product used for unknown indication
     Dosage: UNK (DRIP)
     Route: 065
     Dates: start: 202210

REACTIONS (1)
  - Arrhythmogenic right ventricular dysplasia [Unknown]

NARRATIVE: CASE EVENT DATE: 20221001
